FAERS Safety Report 14657125 (Version 1)
Quarter: 2018Q1

REPORT INFORMATION
  Report Type: Spontaneous
  Country: HU (occurrence: HU)
  Receive Date: 20180319
  Receipt Date: 20180319
  Transmission Date: 20180509
  Serious: Yes (Other)
  Sender: FDA-Public Use
  Company Number: HU-PFIZER INC-2018108584

PATIENT
  Age: 43 Year
  Sex: Female

DRUGS (10)
  1. CARBOPLATIN. [Suspect]
     Active Substance: CARBOPLATIN
     Indication: OVARIAN CANCER
     Dosage: 700 MG, CYCLIC (EVERY 3 WEEKS)
     Dates: start: 20170908
  2. SOLU-MEDROL [Concomitant]
     Active Substance: METHYLPREDNISOLONE SODIUM SUCCINATE
     Indication: PREMEDICATION
     Dosage: 200 MG, EVERY 3 WEEKS
  3. TRITACE [Concomitant]
     Active Substance: RAMIPRIL
     Indication: HYPERTENSION
     Dosage: 10 MG, 1X/DAY
  4. QUAMATEL [Concomitant]
     Active Substance: FAMOTIDINE
     Indication: DYSPEPSIA
     Dosage: UNK
  5. PACLITAXEL. [Suspect]
     Active Substance: PACLITAXEL
     Indication: OVARIAN CANCER
     Dosage: 300 MG, CYCLIC (EVERY 3 WEEKS)
     Dates: start: 20170908
  6. CHOLECALCIFEROL [Concomitant]
     Active Substance: CHOLECALCIFEROL
     Indication: PROPHYLAXIS
     Dosage: UNK
  7. CALCIMUSC [Concomitant]
     Active Substance: CALCIUM GLUCONATE
     Indication: PREMEDICATION
     Dosage: 500 MG, CYCLIC
  8. MAGNE B6 [Concomitant]
     Active Substance: MAGNESIUM\PYRIDOXINE
     Indication: PROPHYLAXIS
     Dosage: UNK
  9. QUAMATEL [Concomitant]
     Active Substance: FAMOTIDINE
     Indication: PREMEDICATION
     Dosage: 40 MG, CYCLIC
  10. ONDANSETRON KABI [Concomitant]
     Active Substance: ONDANSETRON
     Indication: PREMEDICATION
     Dosage: 8 MG, CYCLIC

REACTIONS (5)
  - Feeling hot [Recovering/Resolving]
  - Dizziness [Recovering/Resolving]
  - Blood pressure increased [Recovering/Resolving]
  - Formication [Unknown]
  - Sleep disorder [Unknown]

NARRATIVE: CASE EVENT DATE: 20171027
